FAERS Safety Report 11446023 (Version 1)
Quarter: 2015Q3

REPORT INFORMATION
  Report Type: Spontaneous
  Country: US (occurrence: US)
  Receive Date: 20150831
  Receipt Date: 20150831
  Transmission Date: 20151125
  Serious: No
  Sender: FDA-Public Use
  Company Number: US-ELI_LILLY_AND_COMPANY-US200808006159

PATIENT
  Age: 64 Year
  Sex: Female
  Weight: 102.49 kg

DRUGS (12)
  1. EXENATIDE [Concomitant]
     Active Substance: EXENATIDE
     Dosage: 10 UG, 2/D
     Route: 058
     Dates: start: 200806
  2. LISINOPRIL. [Concomitant]
     Active Substance: LISINOPRIL
     Indication: TYPE 2 DIABETES MELLITUS
     Dates: start: 2002
  3. CYMBALTA [Suspect]
     Active Substance: DULOXETINE HYDROCHLORIDE
     Indication: NEUROPATHY PERIPHERAL
     Dates: start: 2007
  4. EXENATIDE [Concomitant]
     Active Substance: EXENATIDE
     Indication: TYPE 2 DIABETES MELLITUS
     Dosage: 5 UG, 2/D
     Route: 058
     Dates: start: 20080409, end: 200806
  5. PREMARIN [Concomitant]
     Active Substance: ESTROGENS, CONJUGATED
     Dates: start: 1988
  6. GLUCOPHAGE [Concomitant]
     Active Substance: METFORMIN HYDROCHLORIDE
     Indication: TYPE 2 DIABETES MELLITUS
     Dosage: 1500 MG, UNK
  7. LANTUS [Concomitant]
     Active Substance: INSULIN GLARGINE
     Indication: TYPE 2 DIABETES MELLITUS
     Dates: start: 2008
  8. FOSINOPRIL [Concomitant]
     Active Substance: FOSINOPRIL
     Indication: TYPE 2 DIABETES MELLITUS
  9. LOVASTATIN. [Concomitant]
     Active Substance: LOVASTATIN
     Indication: TYPE 2 DIABETES MELLITUS
     Dates: start: 2002
  10. WELLBUTRIN [Concomitant]
     Active Substance: BUPROPION HYDROCHLORIDE
     Route: 048
     Dates: start: 2002
  11. OMEPRAZOLE. [Concomitant]
     Active Substance: OMEPRAZOLE
     Dosage: 40 MG, UNK
     Route: 048
     Dates: start: 2002
  12. ASA [Concomitant]
     Active Substance: ASPIRIN
     Dosage: 81 MG, DAILY (1/D)
     Route: 048
     Dates: start: 2002

REACTIONS (4)
  - Pain [Recovering/Resolving]
  - Tremor [Not Recovered/Not Resolved]
  - Cholecystectomy [Recovered/Resolved]
  - Vomiting [Recovered/Resolved]

NARRATIVE: CASE EVENT DATE: 200804
